FAERS Safety Report 8349382-9 (Version None)
Quarter: 2012Q2

REPORT INFORMATION
  Report Type: 
  Country: None (occurrence: None)
  Receive Date: 20120510
  Receipt Date: 20120508
  Transmission Date: 20120825
  Serious: Yes (Disabling, Other)
  Sender: FDA-Public Use
  Company Number: US-PFIZER INC-2012112420

PATIENT
  Sex: Female
  Weight: 63.946 kg

DRUGS (3)
  1. LYRICA [Suspect]
     Indication: DIABETIC NEUROPATHY
     Dosage: 50 MG, 3X/DAY
     Dates: start: 20120401
  2. LYRICA [Suspect]
     Indication: PAIN
     Dosage: 300 MG, DAILY
     Dates: start: 20120501
  3. ESOMEPRAZOLE [Concomitant]
     Dosage: UNK

REACTIONS (6)
  - PARAESTHESIA [None]
  - BURNING SENSATION [None]
  - GAIT DISTURBANCE [None]
  - HYPERSENSITIVITY [None]
  - PAIN [None]
  - PAIN IN EXTREMITY [None]
